FAERS Safety Report 4332193-9 (Version None)
Quarter: 2004Q1

REPORT INFORMATION
  Report Type: 
  Country: None (occurrence: None)
  Receive Date: 20040331
  Receipt Date: 20040318
  Transmission Date: 20041129
  Serious: Yes (Disabling)
  Sender: FDA-Public Use
  Company Number: 2004018637

PATIENT
  Sex: Female

DRUGS (1)
  1. NEURONTIN [Suspect]
     Indication: POLYNEUROPATHY
     Dosage: 900 MG (TID), ORAL
     Route: 048
     Dates: start: 20030101, end: 20030101

REACTIONS (3)
  - CONDITION AGGRAVATED [None]
  - DIFFICULTY IN WALKING [None]
  - POLYNEUROPATHY [None]
